FAERS Safety Report 21125782 (Version 3)
Quarter: 2022Q3

REPORT INFORMATION
  Report Type: Report from Study
  Country: IT (occurrence: IT)
  Receive Date: 20220725
  Receipt Date: 20220913
  Transmission Date: 20221026
  Serious: Yes (Hospitalization)
  Sender: FDA-Public Use
  Company Number: None

PATIENT

DRUGS (5)
  1. ZIDOVUDINE [Suspect]
     Active Substance: ZIDOVUDINE
     Indication: HIV infection
     Dosage: 2.6 ML
     Route: 064
     Dates: start: 20220420, end: 20220607
  2. ISENTRESS [Suspect]
     Active Substance: RALTEGRAVIR POTASSIUM
     Indication: Acute HIV infection
     Dosage: 800 MG, QD
     Route: 064
  3. PREZISTA [Suspect]
     Active Substance: DARUNAVIR ETHANOLATE
     Indication: Acute HIV infection
     Dosage: 800 MG, QD
     Route: 064
  4. EDURANT [Suspect]
     Active Substance: RILPIVIRINE HYDROCHLORIDE
     Indication: Acute HIV infection
     Dosage: 25 MG, QD
     Route: 064
  5. NORVIR [Suspect]
     Active Substance: RITONAVIR
     Indication: Acute HIV infection
     Dosage: 400 MG, QD
     Route: 064

REACTIONS (4)
  - Ventricular extrasystoles [Recovering/Resolving]
  - Adnexa uteri cyst [Recovering/Resolving]
  - Heart rate irregular [Recovering/Resolving]
  - Foetal exposure during pregnancy [Unknown]

NARRATIVE: CASE EVENT DATE: 20220422
